FAERS Safety Report 15365129 (Version 2)
Quarter: 2018Q3

REPORT INFORMATION
  Report Type: Report from Study
  Country: US (occurrence: US)
  Receive Date: 20180910
  Receipt Date: 20180918
  Transmission Date: 20181010
  Serious: Yes (Hospitalization)
  Sender: FDA-Public Use
  Company Number: US-ROCHE-2181119

PATIENT
  Age: 37 Year
  Sex: Female
  Weight: 66.4 kg

DRUGS (15)
  1. CYANOCOBALAMIN. [Concomitant]
     Active Substance: CYANOCOBALAMIN
     Route: 048
  2. XANAX [Concomitant]
     Active Substance: ALPRAZOLAM
     Route: 048
  3. OCREVUS [Suspect]
     Active Substance: OCRELIZUMAB
     Route: 065
     Dates: start: 201804
  4. AMPYRA [Concomitant]
     Active Substance: DALFAMPRIDINE
     Route: 048
  5. MEDROL [Concomitant]
     Active Substance: METHYLPREDNISOLONE
     Route: 048
  6. LEVETIRACETAM. [Concomitant]
     Active Substance: LEVETIRACETAM
     Route: 048
  7. BREO ELLIPTA [Concomitant]
     Active Substance: FLUTICASONE FUROATE\VILANTEROL TRIFENATATE
     Route: 045
  8. KEPPRA [Concomitant]
     Active Substance: LEVETIRACETAM
  9. FAMOTIDINE. [Concomitant]
     Active Substance: FAMOTIDINE
     Route: 048
  10. ACETAMINOPHEN/OXYCODONE [Concomitant]
     Active Substance: ACETAMINOPHEN\OXYCODONE HYDROCHLORIDE
     Dosage: 10?325 MG
     Route: 048
  11. PROMETHAZINE [Concomitant]
     Active Substance: PROMETHAZINE\PROMETHAZINE HYDROCHLORIDE
     Route: 048
  12. XANAX [Concomitant]
     Active Substance: ALPRAZOLAM
     Route: 048
  13. REMERON [Concomitant]
     Active Substance: MIRTAZAPINE
     Route: 048
  14. OCREVUS [Suspect]
     Active Substance: OCRELIZUMAB
     Indication: RELAPSING MULTIPLE SCLEROSIS
     Route: 065
     Dates: start: 201708
  15. ROPINIROLE. [Concomitant]
     Active Substance: ROPINIROLE
     Route: 048

REACTIONS (10)
  - Micturition disorder [Unknown]
  - Encephalitis [Recovered/Resolved]
  - Blepharospasm [Unknown]
  - Myoclonus [Unknown]
  - B-lymphocyte count decreased [Unknown]
  - Asthenia [Unknown]
  - Feeling hot [Unknown]
  - Feeling abnormal [Unknown]
  - Hypoaesthesia [Unknown]
  - Fatigue [Unknown]

NARRATIVE: CASE EVENT DATE: 2018
